FAERS Safety Report 10758304 (Version 1)
Quarter: 2015Q1

REPORT INFORMATION
  Report Type: Spontaneous
  Country: US (occurrence: None)
  Receive Date: 20150202
  Receipt Date: 20150202
  Transmission Date: 20150721
  Serious: Yes (Hospitalization)
  Sender: FDA-Public Use
  Company Number: None

PATIENT
  Age: 68 Year
  Sex: Male

DRUGS (1)
  1. NEXAVAR [Suspect]
     Active Substance: SORAFENIB
     Indication: RENAL CELL CARCINOMA
     Route: 048
     Dates: start: 20150109, end: 20150124

REACTIONS (3)
  - Nausea [None]
  - Vomiting [None]
  - Cardiac disorder [None]

NARRATIVE: CASE EVENT DATE: 20150119
